FAERS Safety Report 17834272 (Version 4)
Quarter: 2020Q2

REPORT INFORMATION
  Report Type: Spontaneous
  Country: US (occurrence: US)
  Receive Date: 20200528
  Receipt Date: 20200630
  Transmission Date: 20200714
  Serious: No
  Sender: FDA-Public Use
  Company Number: US-SA-2020SA134593

PATIENT

DRUGS (1)
  1. LANTUS [Suspect]
     Active Substance: INSULIN GLARGINE
     Indication: TYPE 2 DIABETES MELLITUS
     Dosage: 63 IU, QD
     Route: 065

REACTIONS (4)
  - Eye disorder [Unknown]
  - Device leakage [Unknown]
  - Incorrect dose administered by device [Unknown]
  - Blood glucose increased [Unknown]
